FAERS Safety Report 12277973 (Version 3)
Quarter: 2016Q2

REPORT INFORMATION
  Report Type: Spontaneous
  Country: FR (occurrence: FR)
  Receive Date: 20160418
  Receipt Date: 20160615
  Transmission Date: 20160815
  Serious: Yes (Other)
  Sender: FDA-Public Use
  Company Number: FR-SA-2016SA045237

PATIENT
  Age: 31 Year
  Sex: Female
  Weight: 60 kg

DRUGS (2)
  1. PENTASA [Concomitant]
     Active Substance: MESALAMINE
     Indication: CROHN^S DISEASE
     Dosage: PER OS
     Dates: start: 201601
  2. AUBAGIO [Suspect]
     Active Substance: TERIFLUNOMIDE
     Indication: MULTIPLE SCLEROSIS
     Route: 048
     Dates: start: 201601

REACTIONS (6)
  - Rash maculo-papular [Recovering/Resolving]
  - Psoriasis [Not Recovered/Not Resolved]
  - Pruritus [Recovering/Resolving]
  - Eczema [Recovering/Resolving]
  - Alopecia [Not Recovered/Not Resolved]
  - Dermatitis allergic [Recovering/Resolving]

NARRATIVE: CASE EVENT DATE: 20160215
